FAERS Safety Report 5047544-X (Version None)
Quarter: 2006Q2

REPORT INFORMATION
  Report Type: 
  Country: None (occurrence: None)
  Receive Date: 20060601
  Receipt Date: 20060327
  Transmission Date: 20061013
  Serious: No
  Sender: FDA-Public Use
  Company Number: 2006PV010976

PATIENT
  Age: 70 Year
  Sex: Female
  Weight: 95.2554 kg

DRUGS (6)
  1. BYETTA [Suspect]
     Indication: DIABETES MELLITUS NON-INSULIN-DEPENDENT
     Dosage: 5 MCG; BID; SC
     Route: 058
     Dates: start: 20060323
  2. GLUCOPHAGE [Concomitant]
  3. ACTOS [Concomitant]
  4. CITRUCEL [Concomitant]
  5. COLON CLEANSE [Concomitant]
  6. SPIRONOLACTONE [Concomitant]

REACTIONS (3)
  - CONSTIPATION [None]
  - NAUSEA [None]
  - VOMITING [None]
